FAERS Safety Report 13091402 (Version 2)
Quarter: 2017Q2

REPORT INFORMATION
  Report Type: Spontaneous
  Country: GB (occurrence: GB)
  Receive Date: 20170106
  Receipt Date: 20170515
  Transmission Date: 20170830
  Serious: Yes (Hospitalization)
  Sender: FDA-Public Use
  Company Number: GB-009507513-1504GBR018519

PATIENT
  Age: 72 Year
  Sex: Male
  Weight: 71.4 kg

DRUGS (10)
  1. NOXAFIL [Suspect]
     Active Substance: POSACONAZOLE
     Dosage: 300 MG, DAILY
     Route: 048
     Dates: start: 20140924, end: 201410
  2. COLOMYCIN [Concomitant]
     Active Substance: COLISTIN
     Indication: BACTERIAL DISEASE CARRIER
     Dosage: 0.5 DF, BID
     Route: 048
  3. NOXAFIL [Suspect]
     Active Substance: POSACONAZOLE
     Dosage: 200 MG, DAILY
     Route: 048
     Dates: start: 201410, end: 20150412
  4. NOXAFIL [Suspect]
     Active Substance: POSACONAZOLE
     Dosage: 100 MG, QD
     Route: 048
     Dates: start: 20150413, end: 201504
  5. NOXAFIL [Suspect]
     Active Substance: POSACONAZOLE
     Dosage: 100 MG, BID
     Route: 048
  6. POSACONAZOLE [Suspect]
     Active Substance: POSACONAZOLE
     Indication: BRONCHOPULMONARY ASPERGILLOSIS
     Dosage: 400 MG, BID
     Route: 048
     Dates: start: 20110701, end: 20110812
  7. POSACONAZOLE [Suspect]
     Active Substance: POSACONAZOLE
     Dosage: 400 MG, TID
     Route: 048
     Dates: start: 20110812, end: 20110930
  8. POSACONAZOLE [Suspect]
     Active Substance: POSACONAZOLE
     Dosage: 400 MG, BID
     Route: 048
     Dates: start: 20110930, end: 20140924
  9. ALBUTEROL. [Concomitant]
     Active Substance: ALBUTEROL
     Indication: ASTHMA
     Dosage: UNK, PRN
  10. SERETIDE [Concomitant]
     Active Substance: FLUTICASONE PROPIONATE\SALMETEROL XINAFOATE
     Indication: ASTHMA
     Dosage: UNK

REACTIONS (5)
  - Paraesthesia [Recovering/Resolving]
  - Malaise [Unknown]
  - Product availability issue [Unknown]
  - Inappropriate schedule of drug administration [Unknown]
  - Adverse event [Unknown]

NARRATIVE: CASE EVENT DATE: 20141015
